FAERS Safety Report 9904436 (Version 1)
Quarter: 2014Q1

REPORT INFORMATION
  Report Type: Report from Study
  Country: US (occurrence: US)
  Receive Date: 20140218
  Receipt Date: 20140218
  Transmission Date: 20141002
  Serious: Yes (Other)
  Sender: FDA-Public Use
  Company Number: US-ROCHE-1348272

PATIENT
  Sex: Female
  Weight: 88.98 kg

DRUGS (3)
  1. NUTROPIN AQ [Suspect]
     Indication: GROWTH HORMONE DEFICIENCY
     Route: 058
     Dates: end: 20131119
  2. NUTROPIN AQ [Suspect]
     Indication: HYPOPITUITARISM
     Route: 058
     Dates: start: 20131119
  3. VENLAFAXINE [Concomitant]
     Route: 065

REACTIONS (7)
  - Melanocytic naevus [Unknown]
  - Chest pain [Unknown]
  - Goitre [Unknown]
  - Vitamin D deficiency [Unknown]
  - Hepatic steatosis [Unknown]
  - Hyperhidrosis [Unknown]
  - Insulin-like growth factor increased [Unknown]
